FAERS Safety Report 18664269 (Version 3)
Quarter: 2021Q1

REPORT INFORMATION
  Report Type: Spontaneous
  Country: GB (occurrence: GB)
  Receive Date: 20201225
  Receipt Date: 20210225
  Transmission Date: 20210419
  Serious: Yes (Other)
  Sender: FDA-Public Use
  Company Number: GB-BIOVITRUM-2020GB7880

PATIENT
  Age: 45 Year
  Sex: Male

DRUGS (8)
  1. ORFADIN [Suspect]
     Active Substance: NITISINONE
     Dates: start: 2014
  2. ORFADIN [Suspect]
     Active Substance: NITISINONE
     Dates: start: 2015
  3. ORFADIN [Suspect]
     Active Substance: NITISINONE
     Dates: start: 2018
  4. ORFADIN [Suspect]
     Active Substance: NITISINONE
     Dates: start: 2017
  5. ORFADIN [Suspect]
     Active Substance: NITISINONE
     Dates: start: 2019
  6. ORFADIN [Suspect]
     Active Substance: NITISINONE
     Indication: ALKAPTONURIA
     Dates: start: 2012
  7. ORFADIN [Suspect]
     Active Substance: NITISINONE
     Dates: start: 2016
  8. ALENDRONIC ACID [Concomitant]
     Active Substance: ALENDRONIC ACID
     Dates: start: 2017

REACTIONS (3)
  - Mydriasis [Not Recovered/Not Resolved]
  - Amino acid level increased [Not Recovered/Not Resolved]
  - Cataract [Not Recovered/Not Resolved]

NARRATIVE: CASE EVENT DATE: 2012
